FAERS Safety Report 11006400 (Version 1)
Quarter: 2015Q2

REPORT INFORMATION
  Report Type: Spontaneous
  Country: US (occurrence: US)
  Receive Date: 20150409
  Receipt Date: 20150409
  Transmission Date: 20150821
  Serious: No
  Sender: FDA-Public Use
  Company Number: US-ALLERGAN-1415841US

PATIENT
  Age: 55 Year
  Sex: Female

DRUGS (3)
  1. LATISSE [Suspect]
     Active Substance: BIMATOPROST
     Dosage: UNK
  2. LATISSE [Suspect]
     Active Substance: BIMATOPROST
     Indication: GROWTH OF EYELASHES
     Dosage: 2 GTT, UNK
     Route: 061
  3. SYNTHROID [Concomitant]
     Active Substance: LEVOTHYROXINE SODIUM
     Indication: THYROIDECTOMY
     Dosage: 1.375 ?G, UNK

REACTIONS (1)
  - Madarosis [Not Recovered/Not Resolved]
